FAERS Safety Report 10573224 (Version 3)
Quarter: 2016Q1

REPORT INFORMATION
  Report Type: Spontaneous
  Country: US (occurrence: US)
  Receive Date: 20141110
  Receipt Date: 20160325
  Transmission Date: 20160525
  Serious: Yes (Hospitalization, Other)
  Sender: FDA-Public Use
  Company Number: US-BAYER-2014-163724

PATIENT
  Age: 25 Year
  Sex: Female

DRUGS (6)
  1. ST. JOHN^S WORT [Concomitant]
     Active Substance: ST. JOHN^S WORT
     Dosage: UNK
     Dates: start: 201109
  2. MIRENA [Suspect]
     Active Substance: LEVONORGESTREL
     Indication: CONTRACEPTION
     Dosage: 20 MCG/24HR, CONT
     Route: 015
     Dates: start: 20081021, end: 20120827
  3. VALTREX [Concomitant]
     Active Substance: VALACYCLOVIR HYDROCHLORIDE
     Dosage: UNK
     Dates: start: 2008
  4. MOTRIN [Concomitant]
     Active Substance: IBUPROFEN
     Indication: PAIN
  5. LORTAB [Concomitant]
     Active Substance: ACETAMINOPHEN\HYDROCODONE BITARTRATE
  6. PAXIL [Concomitant]
     Active Substance: PAROXETINE HYDROCHLORIDE

REACTIONS (14)
  - Emotional distress [None]
  - Medical device discomfort [None]
  - Cardiac arrest [None]
  - Device issue [None]
  - Injury [None]
  - Medical device pain [None]
  - Scar [None]
  - Procedural pain [None]
  - Anxiety [None]
  - Device failure [None]
  - Pregnancy with contraceptive device [None]
  - Drug ineffective [None]
  - Uterine perforation [None]
  - Depression [None]

NARRATIVE: CASE EVENT DATE: 20111003
